FAERS Safety Report 7730477-5 (Version None)
Quarter: 2011Q3

REPORT INFORMATION
  Report Type: 
  Country: None (occurrence: None)
  Receive Date: 20110906
  Receipt Date: 20110824
  Transmission Date: 20111222
  Serious: Yes (Hospitalization)
  Sender: FDA-Public Use
  Company Number: CA-SANOFI-AVENTIS-2011SA054969

PATIENT
  Age: 50 Year
  Sex: Female
  Weight: 64.6 kg

DRUGS (3)
  1. BLINDED THERAPY [Suspect]
     Route: 065
     Dates: start: 20110627, end: 20110808
  2. DOCETAXEL [Suspect]
     Route: 041
     Dates: start: 20110627, end: 20110627
  3. DOCETAXEL [Suspect]
     Route: 041
     Dates: start: 20110808, end: 20110808

REACTIONS (1)
  - HYPERCALCAEMIA [None]
